FAERS Safety Report 26208144 (Version 1)
Quarter: 2025Q4

REPORT INFORMATION
  Report Type: Spontaneous
  Country: US (occurrence: None)
  Receive Date: 20251224
  Receipt Date: 20251224
  Transmission Date: 20260118
  Serious: Yes (Hospitalization)
  Sender: FDA-CTU
  Company Number: None

PATIENT
  Sex: Male

DRUGS (1)
  1. LENALIDOMIDE [Suspect]
     Active Substance: LENALIDOMIDE
     Indication: Plasma cell myeloma
     Dosage: 15 MG DAILY ORAL
     Route: 048
     Dates: start: 20250826

REACTIONS (4)
  - Gait inability [None]
  - Arthralgia [None]
  - Confusional state [None]
  - Rash [None]
